FAERS Safety Report 8797451 (Version 4)
Quarter: 2015Q1

REPORT INFORMATION
  Report Type: Report from Study
  Country: US (occurrence: US)
  Receive Date: 20120919
  Receipt Date: 20150304
  Transmission Date: 20150721
  Serious: Yes (Death)
  Sender: FDA-Public Use
  Company Number: US-ROCHE-1093943

PATIENT
  Age: 63 Year
  Sex: Female
  Weight: 52.66 kg

DRUGS (10)
  1. OXYCODONE [Concomitant]
     Active Substance: OXYCODONE
  2. TYLENOL [Concomitant]
     Active Substance: ACETAMINOPHEN
  3. ABRAXANE [Concomitant]
     Active Substance: PACLITAXEL
  4. NEUMEGA [Concomitant]
     Active Substance: OPRELVEKIN
  5. AVASTIN [Suspect]
     Active Substance: BEVACIZUMAB
     Indication: BREAST CANCER
     Route: 065
  6. GEMZAR [Concomitant]
     Active Substance: GEMCITABINE HYDROCHLORIDE
  7. FILGRASTIM [Concomitant]
     Active Substance: FILGRASTIM
     Route: 065
  8. FOSAMAX [Concomitant]
     Active Substance: ALENDRONATE SODIUM
     Route: 065
  9. ALDACTONE (UNITED STATES) [Concomitant]
     Route: 065
  10. XANAX [Concomitant]
     Active Substance: ALPRAZOLAM

REACTIONS (23)
  - Abdominal distension [Unknown]
  - Death [Fatal]
  - Abdominal discomfort [Unknown]
  - Abdominal pain [Unknown]
  - Anaemia [Unknown]
  - Weight decreased [Unknown]
  - Peritonitis bacterial [Unknown]
  - Headache [Unknown]
  - Muscle spasms [Unknown]
  - Decreased appetite [Unknown]
  - Diarrhoea [Unknown]
  - Oedema [Unknown]
  - Dyspnoea exertional [Unknown]
  - Systemic lupus erythematosus [Unknown]
  - Thrombocytopenia [Unknown]
  - Body temperature increased [Unknown]
  - Constipation [Unknown]
  - Abdominal tenderness [Unknown]
  - Asthenia [Unknown]
  - Fatigue [Unknown]
  - Ascites [Unknown]
  - Decreased appetite [Unknown]
  - Neuropathy peripheral [Unknown]

NARRATIVE: CASE EVENT DATE: 20080818
